FAERS Safety Report 16394209 (Version 3)
Quarter: 2019Q3

REPORT INFORMATION
  Report Type: Spontaneous
  Country: GR (occurrence: GR)
  Receive Date: 20190605
  Receipt Date: 20190708
  Transmission Date: 20191004
  Serious: No
  Sender: FDA-Public Use
  Company Number: GR-PFIZER INC-2019237923

PATIENT
  Age: 39 Year
  Sex: Female

DRUGS (7)
  1. SALBUTAMOL [Suspect]
     Active Substance: ALBUTEROL
     Dosage: 200 UG, 3X/DAY
     Route: 055
  2. BETAMETHASONE. [Suspect]
     Active Substance: BETAMETHASONE
     Dosage: 12 MG, UNK (2 DOSES)
  3. FLUTICASONE PROPIONATE. [Suspect]
     Active Substance: FLUTICASONE PROPIONATE
     Dosage: 250 UG, 2X/DAY
     Route: 055
  4. METHYLPREDNISOLONE. [Suspect]
     Active Substance: METHYLPREDNISOLONE
     Indication: RHINITIS
     Dosage: 8 MG, 2X/DAY
  5. AZATHIOPRINE. [Suspect]
     Active Substance: AZATHIOPRINE
     Dosage: 125 MG, DAILY
  6. METHYLPREDNISOLONE. [Suspect]
     Active Substance: METHYLPREDNISOLONE
     Indication: ASTHMA
     Dosage: 4 MG, 2X/DAY
  7. NADROPARIN CALCIUM [Suspect]
     Active Substance: NADROPARIN CALCIUM
     Dosage: 0.3 ML, 2X/DAY

REACTIONS (1)
  - Maternal exposure during pregnancy [Unknown]
